FAERS Safety Report 9470259 (Version 1)
Quarter: 2013Q3

REPORT INFORMATION
  Report Type: Spontaneous
  Country: US (occurrence: US)
  Receive Date: 20130822
  Receipt Date: 20130822
  Transmission Date: 20140515
  Serious: No
  Sender: FDA-Public Use
  Company Number: US-SANOFI-AVENTIS-2013SA051278

PATIENT
  Age: 67 Year
  Sex: Female
  Weight: 110 kg

DRUGS (9)
  1. MULTAQ [Suspect]
     Indication: ATRIAL FIBRILLATION
     Dosage: FOR 2 YEARS
     Route: 048
     Dates: start: 201007
  2. COUMADIN [Suspect]
  3. METOPROLOL [Concomitant]
     Indication: ATRIAL FIBRILLATION
     Dates: start: 2007
  4. METOPROLOL [Concomitant]
     Indication: HYPERTENSION
     Dates: start: 2007
  5. SYNTHROID [Concomitant]
     Indication: THYROID CANCER
     Dates: start: 2010
  6. PRILOSEC [Concomitant]
     Indication: ABDOMINAL DISCOMFORT
     Dates: start: 2003
  7. BENICAR [Concomitant]
     Indication: HYPERTENSION
     Dates: start: 2007
  8. WARFARIN [Concomitant]
     Indication: ATRIAL FIBRILLATION
     Dates: start: 2010
  9. ATORVASTATIN [Concomitant]
     Indication: HYPERCHOLESTEROLAEMIA
     Dates: start: 2008

REACTIONS (2)
  - Epistaxis [Recovered/Resolved]
  - Nasal congestion [Unknown]
